FAERS Safety Report 4330482-5 (Version None)
Quarter: 2004Q1

REPORT INFORMATION
  Report Type: 
  Country: None (occurrence: None)
  Receive Date: 20040329
  Receipt Date: 20040316
  Transmission Date: 20041129
  Serious: Yes (Other)
  Sender: FDA-Public Use
  Company Number: AU-JNJFOC-20040303814

PATIENT
  Sex: Female

DRUGS (1)
  1. DAKTARIN (MICONAZOLE) TINCTURE [Suspect]
     Indication: ONYCHOMYCOSIS
     Dosage: 1 IN 1 DAY, TOPICAL
     Route: 061
     Dates: start: 20040215, end: 20040215

REACTIONS (4)
  - BLISTER [None]
  - CHEMICAL BURN OF SKIN [None]
  - SENSORY LOSS [None]
  - SWELLING [None]
